FAERS Safety Report 5577485-0 (Version None)
Quarter: 2007Q4

REPORT INFORMATION
  Report Type: 
  Country: None (occurrence: None)
  Receive Date: 20071228
  Receipt Date: 20071218
  Transmission Date: 20080405
  Serious: Yes (Disabling)
  Sender: FDA-Public Use
  Company Number: PT-PFIZER INC-2007107505

PATIENT
  Sex: Male

DRUGS (3)
  1. CHANTIX [Suspect]
     Indication: SMOKING CESSATION THERAPY
     Route: 048
  2. ANTIHYPERTENSIVES [Concomitant]
     Indication: HYPERTENSION
  3. ALL OTHER THERAPEUTIC PRODUCTS [Concomitant]
     Indication: HYPERCHOLESTEROLAEMIA

REACTIONS (3)
  - MUSCLE SPASMS [None]
  - NAUSEA [None]
  - VISUAL DISTURBANCE [None]
